FAERS Safety Report 7268497-X (Version None)
Quarter: 2010Q4

REPORT INFORMATION
  Report Type: 
  Country: None (occurrence: None)
  Receive Date: 20101206
  Receipt Date: 20101104
  Transmission Date: 20110411
  Serious: No
  Sender: FDA-Public Use
  Company Number: 2010SP059005

PATIENT
  Age: 35 Year
  Sex: Female

DRUGS (1)
  1. SAPHRIS [Suspect]
     Indication: BIPOLAR I DISORDER
     Dosage: 10 MG;BID;SL
     Route: 060
     Dates: start: 20101001, end: 20101001

REACTIONS (1)
  - ENURESIS [None]
